FAERS Safety Report 16121937 (Version 1)
Quarter: 2019Q2

REPORT INFORMATION
  Report Type: Spontaneous
  Country: US (occurrence: US)
  Receive Date: 20190326
  Receipt Date: 20190326
  Transmission Date: 20190711
  Serious: No
  Sender: FDA-Public Use
  Company Number: None

PATIENT
  Age: 59 Year
  Sex: Male
  Weight: 75.6 kg

DRUGS (4)
  1. IBUPROFEN 800MG PO TID PRN PAIN [Concomitant]
     Dates: start: 20180101, end: 20190326
  2. ATORVASTATIN 20MG PO DAILY [Concomitant]
     Dates: start: 20180101, end: 20190326
  3. HARVONI [Suspect]
     Active Substance: LEDIPASVIR\SOFOSBUVIR
     Indication: CHRONIC HEPATITIS C
     Route: 048
     Dates: start: 20190111, end: 20190307
  4. ASPIRIN 81MG PO DAILY [Concomitant]
     Active Substance: ASPIRIN
     Dates: start: 20180101, end: 20190326

REACTIONS (1)
  - Blood pressure increased [None]

NARRATIVE: CASE EVENT DATE: 20190111
